FAERS Safety Report 5796024-2 (Version None)
Quarter: 2008Q3

REPORT INFORMATION
  Report Type: 
  Country: None (occurrence: None)
  Receive Date: 20080701
  Receipt Date: 20080618
  Transmission Date: 20090109
  Serious: Yes (Other)
  Sender: FDA-Public Use
  Company Number: FI-ROCHE-571346

PATIENT
  Sex: Female

DRUGS (4)
  1. XELODA [Suspect]
     Indication: RECTAL CANCER
     Route: 048
     Dates: start: 20061001, end: 20070201
  2. XELODA [Suspect]
     Route: 048
     Dates: start: 20071101, end: 20080401
  3. OXALIPLATIN [Concomitant]
     Indication: RECTAL CANCER
     Dates: start: 20061001, end: 20070201
  4. IRINOTECAN HCL [Concomitant]
     Indication: RECTAL CANCER
     Dates: start: 20071101, end: 20080401

REACTIONS (2)
  - DISEASE PROGRESSION [None]
  - DUPUYTREN'S CONTRACTURE [None]
